FAERS Safety Report 21717488 (Version 1)
Quarter: 2022Q4

REPORT INFORMATION
  Report Type: Spontaneous
  Country: US (occurrence: None)
  Receive Date: 20221212
  Receipt Date: 20221212
  Transmission Date: 20230113
  Serious: No
  Sender: FDA-Public Use
  Company Number: None

PATIENT
  Age: 79 Year
  Sex: Male

DRUGS (1)
  1. MOLNUPIRAVIR [Suspect]
     Active Substance: MOLNUPIRAVIR
     Indication: COVID-19
     Dosage: FREQUENCY : TWICE A DAY;?
     Dates: start: 20220810, end: 20220814

REACTIONS (5)
  - Haematochezia [None]
  - COVID-19 [None]
  - Condition aggravated [None]
  - Bronchitis [None]
  - Haemorrhage [None]

NARRATIVE: CASE EVENT DATE: 20220817
